FAERS Safety Report 22194906 (Version 1)
Quarter: 2023Q2

REPORT INFORMATION
  Report Type: Spontaneous
  Country: US (occurrence: US)
  Receive Date: 20230411
  Receipt Date: 20230411
  Transmission Date: 20230722
  Serious: No
  Sender: FDA-Public Use
  Company Number: US-UNITED THERAPEUTICS-UNT-2023-009554

PATIENT
  Age: 29 Year
  Sex: Female
  Weight: 68.027 kg

DRUGS (2)
  1. REMODULIN [Suspect]
     Active Substance: TREPROSTINIL
     Indication: Pulmonary arterial hypertension
     Dosage: 0.07619 ?G/KG (SELF FILL CASSETTE WITH 2.8 ML, AT A PUMP RATE OF 32 MCL/HOUR), CONTINUING
     Route: 058
  2. REMODULIN [Suspect]
     Active Substance: TREPROSTINIL
     Dosage: UNK, CONTINUING
     Route: 058
     Dates: start: 20230127

REACTIONS (3)
  - Device power source issue [Unknown]
  - Device wireless communication issue [Unknown]
  - Headache [Unknown]

NARRATIVE: CASE EVENT DATE: 20230403
